FAERS Safety Report 5639567-4 (Version None)
Quarter: 2008Q1

REPORT INFORMATION
  Report Type: 
  Country: None (occurrence: None)
  Receive Date: 20080226
  Receipt Date: 20080218
  Transmission Date: 20080703
  Serious: Yes (Other)
  Sender: FDA-Public Use
  Company Number: JP-MERCK-0802USA04795

PATIENT
  Age: 72 Year
  Sex: Male

DRUGS (10)
  1. PEPCID RPD [Suspect]
     Route: 048
     Dates: start: 20060701, end: 20060801
  2. [THERAPY UNSPECIFIED] [Suspect]
     Route: 065
  3. [THERAPY UNSPECIFIED] [Suspect]
     Route: 065
  4. [THERAPY UNSPECIFIED] [Suspect]
     Route: 065
  5. [THERAPY UNSPECIFIED] [Suspect]
     Route: 065
  6. [THERAPY UNSPECIFIED] [Suspect]
     Route: 065
  7. [THERAPY UNSPECIFIED] [Suspect]
     Route: 065
  8. [THERAPY UNSPECIFIED] [Suspect]
     Route: 065
  9. [THERAPY UNSPECIFIED] [Suspect]
     Route: 065
  10. [THERAPY UNSPECIFIED] [Suspect]
     Route: 065

REACTIONS (2)
  - LIVER DISORDER [None]
  - TOXIC EPIDERMAL NECROLYSIS [None]
